FAERS Safety Report 25169305 (Version 1)
Quarter: 2025Q2

REPORT INFORMATION
  Report Type: Spontaneous
  Country: PL (occurrence: PL)
  Receive Date: 20250407
  Receipt Date: 20250407
  Transmission Date: 20250716
  Serious: Yes (Hospitalization, Other)
  Sender: SANDOZ
  Company Number: PL-SZ09-PHHY2015PL159573

PATIENT
  Age: 4 Year
  Sex: Female

DRUGS (3)
  1. MOMETASONE [Suspect]
     Active Substance: MOMETASONE
     Indication: Dermatitis atopic
     Dosage: 30 MG, QMO 2-3 TIMES A WEEK (30 G/MONTH)
     Route: 061
  2. METHYLPREDNISOLONE ACEPONATE [Suspect]
     Active Substance: METHYLPREDNISOLONE ACEPONATE
     Indication: Dermatitis atopic
     Route: 065
  3. PIMECROLIMUS [Suspect]
     Active Substance: PIMECROLIMUS
     Indication: Dermatitis atopic
     Route: 065

REACTIONS (3)
  - Growth retardation [Recovered/Resolved]
  - Cushing^s syndrome [Recovered/Resolved]
  - Intentional product misuse [Recovered/Resolved]
